FAERS Safety Report 7038078-1 (Version None)
Quarter: 2010Q4

REPORT INFORMATION
  Report Type: 
  Country: None (occurrence: None)
  Receive Date: 20101011
  Receipt Date: 20101005
  Transmission Date: 20110411
  Serious: Yes (Other)
  Sender: FDA-Public Use
  Company Number: US-PFIZER INC-2010126946

PATIENT
  Sex: Female

DRUGS (3)
  1. AMLODIPINE BESYLATE [Suspect]
     Dosage: UNK
  2. LISINOPRIL [Suspect]
     Dosage: UNK
     Route: 065
     Dates: start: 20100201
  3. HUMIRA [Suspect]
     Indication: PSORIASIS
     Dosage: UNK
     Route: 065

REACTIONS (5)
  - BLOOD PRESSURE INCREASED [None]
  - CORONARY ARTERY OCCLUSION [None]
  - COUGH [None]
  - HEADACHE [None]
  - PARANASAL SINUS HYPERSECRETION [None]
